FAERS Safety Report 14009080 (Version 31)
Quarter: 2020Q3

REPORT INFORMATION
  Report Type: Spontaneous
  Country: CA (occurrence: CA)
  Receive Date: 20170925
  Receipt Date: 20200918
  Transmission Date: 20201102
  Serious: Yes (Hospitalization, Other)
  Sender: FDA-Public Use
  Company Number: CA-CELLTRION INC.-2017CA012486

PATIENT

DRUGS (36)
  1. HYDROCHLOROTHIAZIDE. [Concomitant]
     Active Substance: HYDROCHLOROTHIAZIDE
     Dosage: 2.5 MG, 1X/DAY
     Route: 048
  2. INFLECTRA [Suspect]
     Active Substance: INFLIXIMAB-DYYB
     Dosage: 420MG (5 MG/KG)  EVERY 4 WEEKS
     Route: 042
     Dates: start: 20190219, end: 20190219
  3. INFLECTRA [Suspect]
     Active Substance: INFLIXIMAB-DYYB
     Dosage: 5  MG/KG (500 MG), EVERY 4 WEEKS
     Route: 042
     Dates: start: 20200404, end: 20200404
  4. INFLECTRA [Suspect]
     Active Substance: INFLIXIMAB-DYYB
     Dosage: 5  MG/KG (500 MG), EVERY 4 WEEKS
     Route: 042
     Dates: start: 20200619, end: 20200619
  5. MODULON [Concomitant]
     Active Substance: TRIMEBUTINE MALEATE
     Dosage: 150 MG, 1X/DAY
     Route: 048
  6. CORTIFOAM [Concomitant]
     Active Substance: HYDROCORTISONE ACETATE
     Indication: ABDOMINAL PAIN
     Dosage: UNK, TWICE A DAY
     Route: 054
  7. CORTIFOAM [Concomitant]
     Active Substance: HYDROCORTISONE ACETATE
     Indication: PAIN
     Dosage: UNK
  8. METHOTREXATE. [Concomitant]
     Active Substance: METHOTREXATE
     Dosage: 15 MG, WEEKLY
     Route: 048
     Dates: start: 20170913
  9. FOLIC ACID. [Concomitant]
     Active Substance: FOLIC ACID
     Dosage: UNK, 6 DAYS A WEEK
  10. INFLECTRA [Suspect]
     Active Substance: INFLIXIMAB-DYYB
     Dosage: 500MG (5 MG/KG)  EVERY 4 WEEKS
     Route: 042
     Dates: start: 20190710, end: 20190710
  11. LEVOTHYROXINE. [Concomitant]
     Active Substance: LEVOTHYROXINE
     Dosage: 0.05 MG, 1X/DAY
     Route: 048
  12. INFLECTRA [Suspect]
     Active Substance: INFLIXIMAB-DYYB
     Dosage: 420MG (5 MG/KG)  EVERY 4 WEEKS
     Route: 042
     Dates: start: 20190809, end: 20190809
  13. HYDROCORTISONE. [Concomitant]
     Active Substance: HYDROCORTISONE
     Indication: PREMEDICATION
     Dosage: 100 MG, UNK
     Route: 042
     Dates: start: 20190809, end: 20190809
  14. INFLECTRA [Suspect]
     Active Substance: INFLIXIMAB-DYYB
     Dosage: 420MG (5 MG/KG)  EVERY 4 WEEKS
     Route: 042
     Dates: start: 20181128, end: 20181128
  15. INFLECTRA [Suspect]
     Active Substance: INFLIXIMAB-DYYB
     Dosage: 5  MG/KG (500 MG), EVERY 4 WEEKS
     Route: 042
     Dates: start: 20200428, end: 20200428
  16. ZOPICLONE [Concomitant]
     Active Substance: ZOPICLONE
     Dosage: 7.5 MG, AT BEDTIME
     Route: 048
  17. INFLECTRA [Suspect]
     Active Substance: INFLIXIMAB-DYYB
     Indication: CROHN^S DISEASE
     Dosage: 600 MG, (EVERY 4 WEEKS)
     Route: 042
     Dates: start: 20170206, end: 20180711
  18. INFLECTRA [Suspect]
     Active Substance: INFLIXIMAB-DYYB
     Dosage: 500MG,  6 WEEKS AND 2 DAYS
     Route: 042
     Dates: start: 20191115, end: 20191115
  19. INFLECTRA [Suspect]
     Active Substance: INFLIXIMAB-DYYB
     Dosage: 5  MG/KG (500 MG), EVERY 4 WEEKS
     Route: 042
     Dates: start: 20200815, end: 20200815
  20. VENLAFAXINE [Concomitant]
     Active Substance: VENLAFAXINE HYDROCHLORIDE
     Dosage: 100 MG, 1X/DAY
     Route: 048
  21. HYDROMORPHONE [Concomitant]
     Active Substance: HYDROMORPHONE
     Dosage: 0.5 MG, 3?4 TIMES A WEEK
     Route: 065
  22. INFLECTRA [Suspect]
     Active Substance: INFLIXIMAB-DYYB
     Dosage: 420MG (5 MG/KG)  EVERY 4 WEEKS
     Route: 042
     Dates: start: 20180905, end: 20180905
  23. INFLECTRA [Suspect]
     Active Substance: INFLIXIMAB-DYYB
     Dosage: 500MG (5MG/KG) EVERY 4 WEEKS
     Route: 042
     Dates: start: 20191002, end: 20191002
  24. INFLECTRA [Suspect]
     Active Substance: INFLIXIMAB-DYYB
     Dosage: 5 MG/KG (500 MG), EVERY 4 WEEKS
     Route: 042
     Dates: start: 20200207, end: 20200207
  25. INFLECTRA [Suspect]
     Active Substance: INFLIXIMAB-DYYB
     Dosage: 5 MG/KG (500 MG), EVERY 4 WEEKS
     Route: 042
     Dates: start: 20200306, end: 20200306
  26. INFLECTRA [Suspect]
     Active Substance: INFLIXIMAB-DYYB
     Dosage: 5  MG/KG (500 MG), EVERY 4 WEEKS
     Route: 042
     Dates: start: 20200718, end: 20200718
  27. GABAPENTIN. [Concomitant]
     Active Substance: GABAPENTIN
     Dosage: 1.8 MG, 2 TABLETS AM; 1 TABLET PM, 3 TABLETS AT BEDTIME
     Route: 048
  28. MODULON [Concomitant]
     Active Substance: TRIMEBUTINE MALEATE
     Dosage: 1 DF, 2X/DAY
     Route: 048
  29. RANITIDINE. [Concomitant]
     Active Substance: RANITIDINE
     Indication: ABSCESS
     Dosage: 150 MG, 1X/DAY
     Route: 048
  30. INFLECTRA [Suspect]
     Active Substance: INFLIXIMAB-DYYB
     Dosage: 420MG (5MG/KG), EVERY 4 WEEKS
     Route: 042
     Dates: start: 20180808, end: 20180808
  31. INFLECTRA [Suspect]
     Active Substance: INFLIXIMAB-DYYB
     Dosage: 420MG (5 MG/KG)  EVERY 4 WEEKS
     Route: 042
     Dates: start: 20180808, end: 20190611
  32. INFLECTRA [Suspect]
     Active Substance: INFLIXIMAB-DYYB
     Dosage: 420MG (5 MG/KG)  EVERY 4 WEEKS
     Route: 042
     Dates: start: 20190122, end: 20190122
  33. INFLECTRA [Suspect]
     Active Substance: INFLIXIMAB-DYYB
     Dosage: 5 MG/KG (500 MG), EVERY 4 WEEKS
     Route: 042
     Dates: start: 20200110, end: 20200110
  34. HYDROMORPHONE [Concomitant]
     Active Substance: HYDROMORPHONE
     Indication: ABDOMINAL PAIN
     Dosage: 0.5 MG, 3?4 TIMES A WEEK, AS NEEDED
     Route: 065
  35. LAX?A?DAY [Concomitant]
     Active Substance: POLYETHYLENE GLYCOL 3350
     Dosage: HALF PACK, ONCE A DAY
     Route: 065
  36. ACETAMINOPHEN. [Concomitant]
     Active Substance: ACETAMINOPHEN
     Indication: PREMEDICATION
     Dosage: 650 MG, UNK
     Dates: start: 20190809, end: 20190809

REACTIONS (31)
  - Chills [Unknown]
  - Haemorrhage [Unknown]
  - Poor venous access [Not Recovered/Not Resolved]
  - Feeling cold [Unknown]
  - Pain [Unknown]
  - Vaginal fistula [Not Recovered/Not Resolved]
  - Oxygen saturation abnormal [Unknown]
  - Fatigue [Unknown]
  - Therapeutic response unexpected [Recovered/Resolved]
  - Hair growth abnormal [Recovered/Resolved]
  - Anal fissure [Not Recovered/Not Resolved]
  - Dehydration [Unknown]
  - Condition aggravated [Not Recovered/Not Resolved]
  - Fistula [Unknown]
  - Drug level increased [Not Recovered/Not Resolved]
  - Vaginal flatulence [Unknown]
  - Incontinence [Not Recovered/Not Resolved]
  - Contusion [Unknown]
  - Incision site pain [Unknown]
  - Infusion site extravasation [Unknown]
  - Colitis [Recovering/Resolving]
  - Abscess [Unknown]
  - Disease recurrence [Recovering/Resolving]
  - Urinary tract infection [Not Recovered/Not Resolved]
  - Arthralgia [Unknown]
  - Pyrexia [Unknown]
  - Infected fistula [Not Recovered/Not Resolved]
  - Clostridium difficile infection [Recovering/Resolving]
  - Anal fistula [Unknown]
  - Vaginal discharge [Unknown]
  - Off label use [Unknown]

NARRATIVE: CASE EVENT DATE: 20170206
